FAERS Safety Report 13778858 (Version 1)
Quarter: 2017Q3

REPORT INFORMATION
  Report Type: Spontaneous
  Country: FI (occurrence: FI)
  Receive Date: 20170721
  Receipt Date: 20170721
  Transmission Date: 20171127
  Serious: Yes (Death, Hospitalization)
  Sender: FDA-Public Use
  Company Number: FI-PFIZER INC-2017318014

PATIENT
  Age: 83 Year
  Sex: Female

DRUGS (9)
  1. ATORVASTATIN [Concomitant]
     Active Substance: ATORVASTATIN
     Dosage: 10 MG, 1X/DAY (10 MG,1 IN 1 D)
     Route: 048
  2. TREXAN [Suspect]
     Active Substance: METHOTREXATE SODIUM
     Indication: PITYRIASIS RUBRA PILARIS
     Dosage: 2.5 MG, WEEKLY (2.5 MG,1 IN 1 W)
     Route: 048
     Dates: start: 20160801, end: 20170107
  3. LITALGIN [Concomitant]
     Active Substance: PITOFENONE
     Dosage: 1 DF, 1X/DAY (ONE TO THREE TIMES)
     Route: 048
     Dates: end: 20170117
  4. MEMANTIN [Concomitant]
     Active Substance: MEMANTINE
     Dosage: 10 MG, 1X/DAY (10 MG,1 IN 1 D)
     Route: 048
  5. SERENASE [Concomitant]
     Active Substance: HALOPERIDOL
     Dosage: 1 MG, 2X/DAY (1 MG,2 IN 1 D)
     Route: 048
  6. BRINTELLIX [Concomitant]
     Active Substance: VORTIOXETINE HYDROBROMIDE
     Dosage: 5 MG, 1X/DAY
     Dates: end: 20170118
  7. BISOPROLOL [Concomitant]
     Active Substance: BISOPROLOL
     Dosage: 1.5 DF, 1X/DAY (1.5 DOSAGE FORM,1 IN 1 D)
     Route: 048
  8. MONTELUKAST [Concomitant]
     Active Substance: MONTELUKAST SODIUM
     Dosage: 10 MG, 1X/DAY (10 MG,1 IN 1 D)
     Route: 048
  9. JANUVIA [Concomitant]
     Active Substance: SITAGLIPTIN PHOSPHATE
     Dosage: 50 MG, 1X/DAY (50 MG,1 IN 1 D)
     Route: 048

REACTIONS (2)
  - Atypical pneumonia [Fatal]
  - Diffuse alveolar damage [Fatal]

NARRATIVE: CASE EVENT DATE: 20170107
